FAERS Safety Report 19273295 (Version 2)
Quarter: 2021Q3

REPORT INFORMATION
  Report Type: Spontaneous
  Country: JP (occurrence: JP)
  Receive Date: 20210519
  Receipt Date: 20210712
  Transmission Date: 20211014
  Serious: Yes (Hospitalization, Other)
  Sender: FDA-Public Use
  Company Number: NVSJ2021JP004799

PATIENT
  Age: 77 Year
  Sex: Female
  Weight: 56 kg

DRUGS (16)
  1. CRAVIT [Suspect]
     Active Substance: LEVOFLOXACIN
     Dosage: 500 MG, QD
     Route: 048
     Dates: start: 20190914, end: 20190918
  2. EQUMET [Suspect]
     Active Substance: METFORMIN HYDROCHLORIDE\VILDAGLIPTIN
     Indication: TYPE 2 DIABETES MELLITUS
     Dosage: METFORMIN 250MG/VILDAGLIPTIN 50MG, BID
     Route: 048
     Dates: start: 20190112, end: 20210319
  3. CRAVIT [Suspect]
     Active Substance: LEVOFLOXACIN
     Dosage: 500 MG, QD
     Route: 048
     Dates: start: 20190624, end: 20190628
  4. CRAVIT [Suspect]
     Active Substance: LEVOFLOXACIN
     Dosage: 500 MG, QD
     Route: 048
     Dates: start: 20191021, end: 20191024
  5. MADOPAR [Concomitant]
     Active Substance: BENSERAZIDE HYDROCHLORIDE\LEVODOPA
     Indication: PARKINSON^S DISEASE
     Dosage: UNK
     Route: 065
     Dates: start: 201803
  6. PREDONINE [Suspect]
     Active Substance: PREDNISOLONE
     Dosage: 15 MG
     Route: 065
     Dates: start: 20210325
  7. KALLIDINOGENASE [Concomitant]
     Active Substance: KALLIDINOGENASE
     Indication: DIZZINESS
  8. MEIACT [Concomitant]
     Active Substance: CEFDITOREN PIVOXIL
     Indication: CYSTITIS
     Dosage: 100 MG, TID, FOUR TIMES A WEEK
     Route: 048
     Dates: start: 20190124, end: 20190128
  9. ADALAT [Suspect]
     Active Substance: NIFEDIPINE
     Indication: HYPERTENSION
     Dosage: 10 MG, QD
     Route: 048
     Dates: start: 20170120
  10. INNOLET R [Concomitant]
     Indication: DIABETES MELLITUS
     Dosage: BID 14UNITS/8UNITS
     Route: 058
     Dates: start: 20050713
  11. MADOPAR [Concomitant]
     Active Substance: BENSERAZIDE HYDROCHLORIDE\LEVODOPA
     Dosage: UNK
     Route: 065
     Dates: start: 202102
  12. CRAVIT [Suspect]
     Active Substance: LEVOFLOXACIN
     Indication: CYSTITIS
     Dosage: 500 MG, QD, FOUR TIMES A WEEK
     Route: 048
     Dates: start: 20190530, end: 20190602
  13. PREDONINE [Suspect]
     Active Substance: PREDNISOLONE
     Indication: PRODUCT USED FOR UNKNOWN INDICATION
     Dosage: 10 MG
     Route: 065
     Dates: start: 20210312
  14. KALLIDINOGENASE [Concomitant]
     Active Substance: KALLIDINOGENASE
     Indication: PERIPHERAL VASCULAR DISORDER
     Dosage: 25 MG, TID
     Route: 048
     Dates: start: 20161028, end: 20190314
  15. CEFZON [Concomitant]
     Indication: CYSTITIS
     Dosage: 100 MG, TID, FOUR TIMES A WEEK
     Route: 048
     Dates: start: 20200824, end: 20200828
  16. GASTER [Concomitant]
     Active Substance: FAMOTIDINE
     Indication: GASTRITIS
     Dosage: 20 MG, QD
     Route: 048
     Dates: start: 20200824, end: 20210312

REACTIONS (16)
  - Dry skin [Unknown]
  - Pruritus [Unknown]
  - Scab [Unknown]
  - Gastritis [Recovering/Resolving]
  - Dermatitis bullous [Recovering/Resolving]
  - Blister [Unknown]
  - Blister rupture [Unknown]
  - Skin erosion [Unknown]
  - Cheilitis [Recovered/Resolved]
  - Diabetes mellitus inadequate control [Recovering/Resolving]
  - Erythema [Unknown]
  - Cystitis [Recovered/Resolved]
  - Skin exfoliation [Unknown]
  - Hyperglycaemia [Unknown]
  - Rash [Recovering/Resolving]
  - Pemphigoid [Recovering/Resolving]

NARRATIVE: CASE EVENT DATE: 20190530
